FAERS Safety Report 12791745 (Version 6)
Quarter: 2016Q4

REPORT INFORMATION
  Report Type: Spontaneous
  Country: US (occurrence: US)
  Receive Date: 20160929
  Receipt Date: 20161209
  Transmission Date: 20170207
  Serious: Yes (Hospitalization, Disabling, Other)
  Sender: FDA-Public Use
  Company Number: US-SA-2016SA176113

PATIENT
  Age: 52 Year
  Sex: Female
  Weight: 32.19 kg

DRUGS (17)
  1. CALTRATE WITH VITAMIN D [Concomitant]
     Active Substance: CALCIUM CARBONATE\CHOLECALCIFEROL
     Indication: SUPPLEMENTATION THERAPY
     Dosage: 600/600MG/400
     Route: 048
     Dates: start: 2011
  2. NORCO [Concomitant]
     Active Substance: ACETAMINOPHEN\HYDROCODONE BITARTRATE
     Indication: PAIN
     Dosage: STRENGTH: 10-325 MG, 1-2 DF AS NEEDED, MAXIMUM 11 PER DAY
     Route: 048
     Dates: start: 201610
  3. DOCUSATE SODIUM. [Concomitant]
     Active Substance: DOCUSATE SODIUM
     Indication: CONSTIPATION
     Route: 048
     Dates: start: 201609
  4. CABERGOLINE. [Concomitant]
     Active Substance: CABERGOLINE
     Indication: PITUITARY TUMOUR BENIGN
     Route: 048
     Dates: start: 20160708
  5. DOSTINEX [Concomitant]
     Active Substance: CABERGOLINE
     Dosage: DISP; 6 TAB, RFL:3
     Route: 048
  6. EPIPEN [Concomitant]
     Active Substance: EPINEPHRINE
     Indication: PROPHYLAXIS
     Dosage: STRENGTH: 0.3 MG/ 0.3 ML (1:1,000)
  7. AUBAGIO [Suspect]
     Active Substance: TERIFLUNOMIDE
     Indication: RELAPSING-REMITTING MULTIPLE SCLEROSIS
     Route: 048
     Dates: start: 20160416, end: 20160714
  8. METHYLPREDNISOLONE. [Concomitant]
     Active Substance: METHYLPREDNISOLONE
     Indication: MULTIPLE SCLEROSIS RELAPSE
     Dosage: THREE DAY TRAILS
     Dates: start: 201402, end: 201410
  9. AVONEX [Concomitant]
     Active Substance: INTERFERON BETA-1A
     Indication: RELAPSING-REMITTING MULTIPLE SCLEROSIS
     Dosage: STRENGTH: 30 MCG/0.5 ML; 0.5 ML (30 MCG TOTAL) INTO SHOULDER, THIGH, OR BUTTOCKS, DISP: 2 ML, RFL:11
     Route: 030
     Dates: start: 20160917
  10. VIVELLE-DOT [Concomitant]
     Active Substance: ESTRADIOL
     Dosage: 0.0075MG/24 HR, 1 PATCH ON TEH SKIN 2 TIMES A WEEK, DISP: 8 PATCH, RFL:12
     Route: 062
  11. ALEVE [Concomitant]
     Active Substance: NAPROXEN SODIUM
     Dosage: 1 TAB PRE AVONEX, DISP; RFL
  12. COLACE [Concomitant]
     Active Substance: DOCUSATE SODIUM
     Indication: CONSTIPATION
     Dosage: PRN; STRENGTH: 100 MG, DISP
     Route: 048
  13. AMPICILLIN [Concomitant]
     Active Substance: AMPICILLIN
  14. METHYLPREDNISOLONE. [Concomitant]
     Active Substance: METHYLPREDNISOLONE
     Indication: MULTIPLE SCLEROSIS RELAPSE
     Dates: start: 20160824, end: 20160829
  15. METHYLPREDNISOLONE. [Concomitant]
     Active Substance: METHYLPREDNISOLONE
     Indication: MULTIPLE SCLEROSIS RELAPSE
     Dosage: PULSE DOSAGES
     Dates: end: 20070402
  16. METHYLPREDNISOLONE. [Concomitant]
     Active Substance: METHYLPREDNISOLONE
     Indication: MULTIPLE SCLEROSIS RELAPSE
     Dates: start: 20160930, end: 20161004
  17. ASCORBIC ACID. [Concomitant]
     Active Substance: ASCORBIC ACID
     Route: 048

REACTIONS (13)
  - Weight decreased [Recovered/Resolved]
  - Ataxia [Unknown]
  - Abasia [Unknown]
  - Multiple sclerosis [Unknown]
  - Hypokinesia [Unknown]
  - Diarrhoea [Recovered/Resolved]
  - Drug ineffective [Unknown]
  - Urinary incontinence [Not Recovered/Not Resolved]
  - Gait disturbance [Unknown]
  - Paralysis [Recovering/Resolving]
  - Brain neoplasm [Unknown]
  - Multiple sclerosis relapse [Recovering/Resolving]
  - Hypoaesthesia [Unknown]

NARRATIVE: CASE EVENT DATE: 2016
